FAERS Safety Report 21987161 (Version 1)
Quarter: 2023Q1

REPORT INFORMATION
  Report Type: Report from Study
  Country: US (occurrence: US)
  Receive Date: 20230213
  Receipt Date: 20230213
  Transmission Date: 20230418
  Serious: Yes (Other)
  Sender: FDA-Public Use
  Company Number: US-TAKEDA-2023TUS013373

PATIENT
  Age: 31 Year
  Sex: Male
  Weight: 56.689 kg

DRUGS (2)
  1. HUMAN IMMUNOGLOBULIN G [Suspect]
     Active Substance: HUMAN IMMUNOGLOBULIN G
     Indication: Product used for unknown indication
     Dosage: 8 GRAM, 1/WEEK
     Route: 065
     Dates: start: 20230112
  2. HUMAN IMMUNOGLOBULIN G [Suspect]
     Active Substance: HUMAN IMMUNOGLOBULIN G
     Dosage: 16 GRAM, Q2WEEKS
     Route: 058
     Dates: start: 20230117

REACTIONS (5)
  - Neck pain [Unknown]
  - Speech disorder [Unknown]
  - Photosensitivity reaction [Unknown]
  - Back pain [Unknown]
  - Headache [Unknown]

NARRATIVE: CASE EVENT DATE: 20230125
